FAERS Safety Report 8696571 (Version 2)
Quarter: 2013Q4

REPORT INFORMATION
  Report Type: Spontaneous
  Country: US (occurrence: US)
  Receive Date: 20120801
  Receipt Date: 20131105
  Transmission Date: 20140711
  Serious: Yes (Hospitalization, Other)
  Sender: FDA-Public Use
  Company Number: US-009507513-1207USA011218

PATIENT
  Sex: Male

DRUGS (8)
  1. ZOCOR [Suspect]
     Dosage: 40 MG, QD
     Route: 048
  2. TRILEPTAL [Suspect]
     Dosage: 300 MG, BID
     Route: 048
  3. TRILEPTAL [Suspect]
     Dosage: 300 MG, QD
     Route: 048
  4. COVERSYL (PERINDOPRIL ARGININE) [Suspect]
     Dosage: 1 DF, QD
     Route: 048
  5. KARDEGIC [Concomitant]
     Dosage: 1 DF, QD
     Route: 048
  6. TENORMINE [Concomitant]
     Dosage: 1 DF, QD
     Route: 048
  7. LEVOTHYROX [Concomitant]
     Dosage: 1 DF, QD
     Route: 048
  8. ESOMEPRAZOLE [Concomitant]
     Dosage: UNK, PRN
     Route: 048

REACTIONS (4)
  - Hyponatraemia [Unknown]
  - Rhabdomyolysis [Unknown]
  - Myalgia [Unknown]
  - Anuria [Unknown]
